FAERS Safety Report 6882022-4 (Version None)
Quarter: 2010Q3

REPORT INFORMATION
  Report Type: 
  Country: None (occurrence: None)
  Receive Date: 20100728
  Receipt Date: 20100728
  Transmission Date: 20110219
  Serious: Yes (Disabling)
  Sender: FDA-Public Use
  Company Number: None

PATIENT
  Age: 52 Year
  Sex: Female
  Weight: 77.1115 kg

DRUGS (1)
  1. ZETIA [Suspect]
     Dates: start: 20031101, end: 20100101

REACTIONS (2)
  - FOOT OPERATION [None]
  - UNEVALUABLE EVENT [None]
